FAERS Safety Report 10494351 (Version 1)
Quarter: 2014Q4

REPORT INFORMATION
  Report Type: Spontaneous
  Country: PL (occurrence: None)
  Receive Date: 20141001
  Receipt Date: 20141001
  Transmission Date: 20150528
  Serious: Yes (Death, Hospitalization, Other)
  Sender: FDA-Public Use
  Company Number: PL-ZYDUS-005042

PATIENT
  Age: 54 Year
  Sex: Male

DRUGS (1)
  1. METFORMIN [Suspect]
     Active Substance: METFORMIN HYDROCHLORIDE

REACTIONS (7)
  - Metabolic acidosis [None]
  - Multi-organ failure [None]
  - Respiratory failure [None]
  - Toxicity to various agents [None]
  - Circulatory collapse [None]
  - Loss of consciousness [None]
  - Suicide attempt [None]
